FAERS Safety Report 15728190 (Version 2)
Quarter: 2019Q1

REPORT INFORMATION
  Report Type: Spontaneous
  Country: US (occurrence: US)
  Receive Date: 20181217
  Receipt Date: 20190115
  Transmission Date: 20190417
  Serious: No
  Sender: FDA-Public Use
  Company Number: US-BAYER-2018-231836

PATIENT
  Age: 87 Year

DRUGS (1)
  1. MIRALAX [Suspect]
     Active Substance: POLYETHYLENE GLYCOL 3350
     Indication: COLONOSCOPY
     Dosage: UNK
     Dates: start: 20121119

REACTIONS (7)
  - Ill-defined disorder [None]
  - Dysgeusia [Not Recovered/Not Resolved]
  - Product use in unapproved indication [None]
  - Paraesthesia oral [Not Recovered/Not Resolved]
  - Off label use [None]
  - Vomiting [None]
  - Oral discomfort [None]

NARRATIVE: CASE EVENT DATE: 20181119
